FAERS Safety Report 12935800 (Version 1)
Quarter: 2016Q4

REPORT INFORMATION
  Report Type: Spontaneous
  Country: BR (occurrence: BR)
  Receive Date: 20161114
  Receipt Date: 20161114
  Transmission Date: 20170207
  Serious: Yes (Other)
  Sender: FDA-Public Use
  Company Number: BR-ROCHE-1853254

PATIENT
  Age: 69 Year
  Sex: Female

DRUGS (3)
  1. CARBOPLATIN. [Suspect]
     Active Substance: CARBOPLATIN
     Indication: LUNG CANCER METASTATIC
     Route: 065
  2. PACLITAXEL. [Suspect]
     Active Substance: PACLITAXEL
     Indication: LUNG CANCER METASTATIC
     Route: 065
  3. AVASTIN [Suspect]
     Active Substance: BEVACIZUMAB
     Indication: LUNG CANCER METASTATIC
     Dosage: MAINTENANCE THERAPY
     Route: 065

REACTIONS (3)
  - Pulmonary embolism [Unknown]
  - Parkinson^s disease [Unknown]
  - Central nervous system lesion [Unknown]
